FAERS Safety Report 9867396 (Version 1)
Quarter: 2014Q1

REPORT INFORMATION
  Report Type: Spontaneous
  Country: US (occurrence: US)
  Receive Date: 20140204
  Receipt Date: 20140204
  Transmission Date: 20141002
  Serious: No
  Sender: FDA-Public Use
  Company Number: US-009507513-1401USA012710

PATIENT
  Sex: Male

DRUGS (4)
  1. ZETIA [Suspect]
     Route: 048
  2. LIPITOR [Suspect]
  3. TRICOR (ADENOSINE) [Suspect]
  4. WELCHOL [Suspect]

REACTIONS (1)
  - Hepatic function abnormal [Unknown]
